FAERS Safety Report 20321884 (Version 2)
Quarter: 2022Q1

REPORT INFORMATION
  Report Type: Other
  Country: US (occurrence: None)
  Receive Date: 20220111
  Receipt Date: 20220127
  Transmission Date: 20220423
  Serious: No
  Sender: FDA-Public Use
  Company Number: US-ROCHE-2996359

PATIENT
  Age: 39 Year
  Sex: Female
  Weight: 62.652 kg

DRUGS (5)
  1. OCREVUS [Suspect]
     Active Substance: OCRELIZUMAB
     Indication: Relapsing multiple sclerosis
     Dosage: JUN/2021
     Route: 042
     Dates: start: 201701
  2. BACLOFEN [Concomitant]
     Active Substance: BACLOFEN
  3. MAXALT [Concomitant]
     Active Substance: RIZATRIPTAN BENZOATE
  4. YAZ [Concomitant]
     Active Substance: DROSPIRENONE\ETHINYL ESTRADIOL
  5. MODERNA COVID-19 VACCINE [Concomitant]
     Active Substance: ELASOMERAN
     Dosage: BOOSTER 07/DEC/2021
     Dates: start: 20210301, end: 20210329

REACTIONS (1)
  - COVID-19 [Recovered/Resolved]

NARRATIVE: CASE EVENT DATE: 20211217
